FAERS Safety Report 5473215-1 (Version None)
Quarter: 2007Q4

REPORT INFORMATION
  Report Type: 
  Country: None (occurrence: None)
  Receive Date: 20071001
  Receipt Date: 20070919
  Transmission Date: 20080405
  Serious: Yes (Hospitalization)
  Sender: FDA-Public Use
  Company Number: GB-ROCHE-508219

PATIENT
  Age: 39 Year
  Sex: Female

DRUGS (4)
  1. XENICAL [Suspect]
     Indication: OBESITY
     Route: 048
     Dates: start: 20070513, end: 20070801
  2. XENICAL [Suspect]
     Route: 048
     Dates: start: 20070901
  3. WARFARIN SODIUM [Concomitant]
     Route: 048
  4. UNSPECIFIED DRUG [Concomitant]
     Route: 048

REACTIONS (3)
  - CELLULITIS [None]
  - INFECTED INSECT BITE [None]
  - THROMBOSIS [None]
